FAERS Safety Report 8858020 (Version 1)
Quarter: 2012Q4

REPORT INFORMATION
  Report Type: Report from Study
  Country: BR (occurrence: BR)
  Receive Date: 20121024
  Receipt Date: 20121024
  Transmission Date: 20130627
  Serious: Yes (Hospitalization)
  Sender: FDA-Public Use
  Company Number: BR-ABBOTT-12P-020-0996665-00

PATIENT
  Sex: Female
  Weight: 44 kg

DRUGS (4)
  1. HUMIRA [Suspect]
     Indication: RHEUMATOID ARTHRITIS
     Route: 058
     Dates: start: 20120919
  2. FLUOXETINE [Concomitant]
     Indication: ANXIETY
     Route: 048
     Dates: start: 201110
  3. LOSARTAN [Concomitant]
     Indication: HYPERTENSION
     Dates: start: 2002
  4. ATENOLOL [Concomitant]
     Indication: HYPERTENSION
     Route: 048
     Dates: start: 2002

REACTIONS (1)
  - Weight decreased [Not Recovered/Not Resolved]
